FAERS Safety Report 8389010-X (Version None)
Quarter: 2012Q2

REPORT INFORMATION
  Report Type: 
  Country: None (occurrence: None)
  Receive Date: 20120528
  Receipt Date: 20120525
  Transmission Date: 20120825
  Serious: Yes (Other)
  Sender: FDA-Public Use
  Company Number: US-PFIZER INC-2012127126

PATIENT
  Sex: Female
  Weight: 71.655 kg

DRUGS (4)
  1. CHANTIX [Suspect]
     Dosage: UNK
     Route: 048
     Dates: start: 20120501, end: 20120524
  2. VENTOLIN [Concomitant]
     Indication: ASTHMA
     Dosage: TWO PUFFS EVERY FOUR HOURS, AS NEEDED
  3. SINGULAIR [Concomitant]
     Indication: ASTHMA
     Dosage: 10 MG, DAILY AT BED TIME
  4. CHANTIX [Suspect]
     Indication: SMOKING CESSATION THERAPY
     Dosage: 0.5 MG, 2X/DAY
     Route: 048
     Dates: start: 20120501, end: 20120501

REACTIONS (4)
  - NAUSEA [None]
  - ABDOMINAL PAIN [None]
  - CHEST PAIN [None]
  - PALPITATIONS [None]
